FAERS Safety Report 16804355 (Version 2)
Quarter: 2020Q1

REPORT INFORMATION
  Report Type: Spontaneous
  Country: US (occurrence: US)
  Receive Date: 20190913
  Receipt Date: 20200106
  Transmission Date: 20200409
  Serious: No
  Sender: FDA-Public Use
  Company Number: US-PFIZER INC-2019394880

PATIENT
  Age: 72 Year
  Sex: Female
  Weight: 107.9 kg

DRUGS (1)
  1. LYRICA [Suspect]
     Active Substance: PREGABALIN
     Indication: NEURALGIA
     Dosage: 150 MG, 2X/DAY

REACTIONS (3)
  - Nasopharyngitis [Unknown]
  - Malaise [Unknown]
  - Hypoacusis [Unknown]
